FAERS Safety Report 6084914-5 (Version None)
Quarter: 2009Q1

REPORT INFORMATION
  Report Type: 
  Country: None (occurrence: None)
  Receive Date: 20090220
  Receipt Date: 20090210
  Transmission Date: 20090719
  Serious: Yes (Death)
  Sender: FDA-Public Use
  Company Number: US-JNJFOC-20090203028

PATIENT
  Age: 16 Year
  Sex: Female

DRUGS (6)
  1. ACETAMINOPHEN/DIPHENHYDRAMINE HCL [Suspect]
     Indication: DRUG ABUSE
     Route: 065
  2. BLACK TAR HEROIN [Suspect]
     Indication: DRUG ABUSE
     Route: 065
  3. ECSTASY [Suspect]
     Indication: DRUG ABUSE
     Route: 065
  4. XANAX [Suspect]
     Indication: DRUG ABUSE
     Route: 065
  5. MARIJUANA [Suspect]
     Indication: DRUG ABUSE
     Route: 065
  6. COCAINE [Suspect]
     Indication: DRUG ABUSE
     Route: 065

REACTIONS (2)
  - MULTIPLE DRUG OVERDOSE [None]
  - SUBSTANCE ABUSE [None]
